FAERS Safety Report 16559740 (Version 1)
Quarter: 2019Q3

REPORT INFORMATION
  Report Type: Spontaneous
  Country: US (occurrence: US)
  Receive Date: 20190711
  Receipt Date: 20190711
  Transmission Date: 20191004
  Serious: No
  Sender: FDA-Public Use
  Company Number: US-AUROBINDO-AUR-APL-2019-017814

PATIENT

DRUGS (2)
  1. LORAZEPAM TABLETS USP 1 MG [Suspect]
     Active Substance: LORAZEPAM
     Indication: ANXIETY
     Dosage: 2 DOSAGE FORM, ONCE A DAY, AS NEEDED
     Route: 065
     Dates: start: 20190204
  2. LORAZEPAM TABLETS USP 1 MG [Suspect]
     Active Substance: LORAZEPAM
     Indication: HEART RATE INCREASED

REACTIONS (4)
  - Drug ineffective [Unknown]
  - Feeling abnormal [Unknown]
  - Nausea [Unknown]
  - Depressed mood [Unknown]
